FAERS Safety Report 15257732 (Version 2)
Quarter: 2018Q4

REPORT INFORMATION
  Report Type: Report from Study
  Country: BR (occurrence: BR)
  Receive Date: 20180808
  Receipt Date: 20181001
  Transmission Date: 20190204
  Serious: Yes (Hospitalization, Other)
  Sender: FDA-Public Use
  Company Number: PHHY2015BR074552

PATIENT
  Age: 49 Year
  Sex: Female
  Weight: 69 kg

DRUGS (27)
  1. XOLAIR [Suspect]
     Active Substance: OMALIZUMAB
     Indication: ASTHMA
     Dosage: 300 MG (2 AMPOULES), QMO
     Route: 058
     Dates: start: 20140919
  2. DEPAKOTE [Concomitant]
     Active Substance: DIVALPROEX SODIUM
     Dosage: 1 DF, Q12H
     Route: 048
  3. AAS [Concomitant]
     Active Substance: ASPIRIN
     Dosage: 2 DF (100 MG), QD
     Route: 048
     Dates: start: 20171106
  4. OMEPRAZOLE. [Concomitant]
     Active Substance: OMEPRAZOLE
     Indication: GASTRITIS
     Dosage: 1 DF, QD
     Route: 048
     Dates: start: 2011
  5. EGIDE [Concomitant]
     Indication: MIGRAINE
     Dosage: 1 DF, QD
     Route: 048
     Dates: start: 201711
  6. NEBILET [Concomitant]
     Active Substance: NEBIVOLOL
     Indication: ARRHYTHMIA
     Dosage: 0.25 DF, QD (ATSRTED: 3 YEARS AGO)
     Route: 048
  7. PANTOPRAZOLE [Concomitant]
     Active Substance: PANTOPRAZOLE
     Indication: GASTROINTESTINAL DISORDER
  8. DEPAKOTE [Concomitant]
     Active Substance: DIVALPROEX SODIUM
     Indication: EPILEPSY
     Dosage: 1 DF (20 MG), Q12H
     Route: 048
  9. NEUTROFER [Concomitant]
     Active Substance: FERROUS BISGLYCINATE
     Indication: PRODUCT USED FOR UNKNOWN INDICATION
     Dosage: 1 DF, QD (ON TREATMENT FOR TWO YEARS)
     Route: 048
  10. NEBILET [Concomitant]
     Active Substance: NEBIVOLOL
     Indication: HYPERTENSION
  11. ATROVENT [Concomitant]
     Active Substance: IPRATROPIUM BROMIDE
     Indication: ASTHMA
     Dosage: 20 MG, TID (STARTED 6 MONTHS AGO)
     Route: 055
  12. TAMIRAM [Suspect]
     Active Substance: LEVOFLOXACIN
     Indication: PHARYNGITIS
     Route: 065
  13. CLENIL [Concomitant]
     Active Substance: BECLOMETHASONE DIPROPIONATE
     Indication: PRODUCT USED FOR UNKNOWN INDICATION
     Dosage: 200 MG, TID
     Route: 065
  14. AAS [Concomitant]
     Active Substance: ASPIRIN
     Indication: PARAESTHESIA
     Dosage: 1 DF, QD (STARTED 3 YEARS AGO)
     Route: 048
  15. DEPAKOTE [Concomitant]
     Active Substance: DIVALPROEX SODIUM
     Indication: MIGRAINE
     Dosage: 2 DF, QD (ON TREATMENT FOR TWO YEARS)
     Route: 048
  16. PANTOPRAZOLE [Concomitant]
     Active Substance: PANTOPRAZOLE
     Indication: GASTRITIS
     Dosage: 1 DF, QD (6 MONTHS AGO)
     Route: 048
  17. SYMBICORT [Concomitant]
     Active Substance: BUDESONIDE\FORMOTEROL FUMARATE DIHYDRATE
     Indication: ASTHMA
     Dosage: UNK UNK, Q12H
     Route: 055
     Dates: start: 201802
  18. XOLAIR [Suspect]
     Active Substance: OMALIZUMAB
     Dosage: 1 AMPOULE, EVERY 15 DAYS (TWO DOSES PER MONTH)
     Route: 058
     Dates: start: 201410
  19. XOLAIR [Suspect]
     Active Substance: OMALIZUMAB
     Dosage: UNK
     Route: 065
  20. ESOMEPRAZOLE. [Concomitant]
     Active Substance: ESOMEPRAZOLE MAGNESIUM
     Indication: GASTRITIS
     Dosage: 1 DF, QD (ON TREATMENT FOR THREE YEARS)
     Route: 048
  21. NYSTATIN. [Concomitant]
     Active Substance: NYSTATIN
     Indication: OROPHARYNGITIS FUNGAL
     Dosage: TID
     Route: 048
     Dates: start: 20170926
  22. EGIDE [Concomitant]
     Indication: EPILEPSY
  23. XOLAIR [Suspect]
     Active Substance: OMALIZUMAB
     Dosage: UNK
     Route: 065
  24. XOLAIR [Suspect]
     Active Substance: OMALIZUMAB
     Dosage: 150 MG, EVERY 15 DAYS
     Route: 065
  25. AZITHROMYCIN ANHYDROUS. [Suspect]
     Active Substance: AZITHROMYCIN ANHYDROUS
     Indication: PNEUMONIA
     Dosage: UNK
     Route: 065
  26. AZITHROMYCIN ANHYDROUS. [Suspect]
     Active Substance: AZITHROMYCIN ANHYDROUS
     Dosage: UNK
     Route: 065
  27. ROSUVASTATIN. [Concomitant]
     Active Substance: ROSUVASTATIN
     Indication: BLOOD CHOLESTEROL ABNORMAL
     Dosage: 1 DF, QD
     Route: 048
     Dates: start: 201711

REACTIONS (28)
  - Tremor [Recovering/Resolving]
  - Pyrexia [Recovering/Resolving]
  - Chest pain [Recovering/Resolving]
  - Paraesthesia [Recovering/Resolving]
  - Limb discomfort [Recovering/Resolving]
  - Fatigue [Recovering/Resolving]
  - Pharyngitis [Recovered/Resolved]
  - Asthenia [Unknown]
  - Pneumonia [Recovering/Resolving]
  - Dyspnoea [Recovering/Resolving]
  - Asthmatic crisis [Recovered/Resolved]
  - Wheezing [Unknown]
  - Seizure [Recovering/Resolving]
  - Pneumonia [Recovered/Resolved]
  - Serum ferritin decreased [Recovering/Resolving]
  - Depressed mood [Recovering/Resolving]
  - Migraine [Not Recovered/Not Resolved]
  - Muscle spasms [Not Recovered/Not Resolved]
  - Pharyngitis [Recovered/Resolved]
  - Drug ineffective [Not Recovered/Not Resolved]
  - Back pain [Recovering/Resolving]
  - Coordination abnormal [Recovering/Resolving]
  - Weight decreased [Recovering/Resolving]
  - Cestode infection [Unknown]
  - Asthmatic crisis [Recovered/Resolved]
  - Drug hypersensitivity [Unknown]
  - Blood immunoglobulin E increased [Unknown]
  - Tachycardia [Recovering/Resolving]

NARRATIVE: CASE EVENT DATE: 201708
